FAERS Safety Report 8581083-4 (Version None)
Quarter: 2012Q3

REPORT INFORMATION
  Report Type: 
  Country: None (occurrence: None)
  Receive Date: 20120727
  Receipt Date: 20120723
  Transmission Date: 20120928
  Serious: Yes (Death, Other)
  Sender: FDA-Public Use
  Company Number: USA/USA/12/0025139

PATIENT

DRUGS (1)
  1. FONDAPARINUX SODIUM [Suspect]
     Indication: THROMBOSIS PROPHYLAXIS
     Dosage: 0.5 MG, 1 D
     Dates: start: 20120101, end: 20120623

REACTIONS (5)
  - HERPES ZOSTER [None]
  - PRODUCT QUALITY ISSUE [None]
  - KIDNEY INFECTION [None]
  - THROMBOSIS [None]
  - DRUG INEFFECTIVE [None]
